FAERS Safety Report 18818159 (Version 2)
Quarter: 2021Q1

REPORT INFORMATION
  Report Type: Report from Study
  Country: MX (occurrence: MX)
  Receive Date: 20210201
  Receipt Date: 20210215
  Transmission Date: 20210419
  Serious: Yes (Other)
  Sender: FDA-Public Use
  Company Number: NVSC2021MX020704

PATIENT
  Age: 68 Year
  Sex: Female
  Weight: 86 kg

DRUGS (1)
  1. GALVUS MET [Suspect]
     Active Substance: METFORMIN HYDROCHLORIDE\VILDAGLIPTIN
     Indication: DIABETES MELLITUS
     Dosage: 1 DF (50/1000 MG), QD
     Route: 048
     Dates: start: 202006, end: 202007

REACTIONS (13)
  - Dyspnoea [Not Recovered/Not Resolved]
  - Somnolence [Unknown]
  - COVID-19 [Recovered/Resolved with Sequelae]
  - Ageusia [Recovered/Resolved with Sequelae]
  - Malaise [Unknown]
  - Back pain [Recovered/Resolved with Sequelae]
  - Pain [Unknown]
  - Anosmia [Recovered/Resolved with Sequelae]
  - Feeling abnormal [Unknown]
  - Oropharyngeal pain [Recovered/Resolved with Sequelae]
  - Chest pain [Recovered/Resolved with Sequelae]
  - Pneumonia [Unknown]
  - Hypoacusis [Not Recovered/Not Resolved]

NARRATIVE: CASE EVENT DATE: 20200707
